FAERS Safety Report 13795381 (Version 4)
Quarter: 2018Q1

REPORT INFORMATION
  Report Type: Spontaneous
  Country: US (occurrence: US)
  Receive Date: 20170726
  Receipt Date: 20180213
  Transmission Date: 20180508
  Serious: Yes (Other)
  Sender: FDA-Public Use
  Company Number: US-LUNDBECK-DKLU2034206

PATIENT
  Age: 46 Year
  Sex: Male

DRUGS (4)
  1. NORTHERA [Suspect]
     Active Substance: DROXIDOPA
     Indication: ORTHOSTATIC HYPOTENSION
     Dosage: SCHEDULE A; TITRATING
     Route: 048
     Dates: start: 20170714
  2. NORTHERA [Suspect]
     Active Substance: DROXIDOPA
     Indication: AUTONOMIC NEUROPATHY
     Dosage: SCHEDULE A; TITRATING
     Route: 048
     Dates: start: 20170713
  3. NORTHERA [Suspect]
     Active Substance: DROXIDOPA
     Indication: HYPOTENSION
     Dosage: SCHEDULE A; TITRATING
     Route: 048
     Dates: start: 20170713
  4. NORTHERA [Suspect]
     Active Substance: DROXIDOPA
     Indication: SYNCOPE
     Dosage: TITRATION
     Route: 048
     Dates: start: 20170711, end: 20170730

REACTIONS (6)
  - Hypersensitivity [Unknown]
  - Urticaria [Unknown]
  - Hyperhidrosis [Unknown]
  - Rash macular [Unknown]
  - Angioedema [Unknown]
  - Dizziness [Unknown]

NARRATIVE: CASE EVENT DATE: 20170713
